FAERS Safety Report 12138459 (Version 1)
Quarter: 2016Q1

REPORT INFORMATION
  Report Type: Spontaneous
  Country: US (occurrence: US)
  Receive Date: 20160302
  Receipt Date: 20160302
  Transmission Date: 20160526
  Serious: No
  Sender: FDA-Public Use
  Company Number: US-PFIZER INC-2016060955

PATIENT
  Sex: Female

DRUGS (4)
  1. METOCLOPRAMIDE HCL [Suspect]
     Active Substance: METOCLOPRAMIDE HYDROCHLORIDE
  2. MORPHINE SULFATE. [Suspect]
     Active Substance: MORPHINE SULFATE
  3. DIFLUCAN [Suspect]
     Active Substance: FLUCONAZOLE
  4. ONDANSETRON [Suspect]
     Active Substance: ONDANSETRON

REACTIONS (1)
  - Drug hypersensitivity [Unknown]
